FAERS Safety Report 24630178 (Version 1)
Quarter: 2024Q4

REPORT INFORMATION
  Report Type: Report from Study
  Country: KR (occurrence: KR)
  Receive Date: 20241118
  Receipt Date: 20241118
  Transmission Date: 20250114
  Serious: No
  Sender: BRISTOL-MYERS SQUIBB COMPANY
  Company Number: KR-BRISTOL-MYERS SQUIBB COMPANY-2024-177307

PATIENT
  Age: 69 Year
  Sex: Male

DRUGS (3)
  1. INREBIC [Suspect]
     Active Substance: FEDRATINIB HYDROCHLORIDE
     Indication: Primary myelofibrosis
     Dates: start: 20240625, end: 20240828
  2. INREBIC [Suspect]
     Active Substance: FEDRATINIB HYDROCHLORIDE
     Dates: start: 20240925, end: 20241104
  3. INREBIC [Suspect]
     Active Substance: FEDRATINIB HYDROCHLORIDE
     Dates: start: 20241105

REACTIONS (2)
  - Abdominal pain [Not Recovered/Not Resolved]
  - Vitamin B1 deficiency [Unknown]

NARRATIVE: CASE EVENT DATE: 20241105
